FAERS Safety Report 9306653 (Version 1)
Quarter: 2013Q2

REPORT INFORMATION
  Report Type: Report from Study
  Country: US (occurrence: US)
  Receive Date: 20130523
  Receipt Date: 20130523
  Transmission Date: 20140414
  Serious: Yes (Hospitalization)
  Sender: FDA-Public Use
  Company Number: US-JNJFOC-20130507431

PATIENT
  Sex: Male
  Weight: 81.65 kg

DRUGS (4)
  1. XARELTO [Suspect]
     Indication: CEREBROVASCULAR ACCIDENT PROPHYLAXIS
     Route: 048
     Dates: start: 2012
  2. XARELTO [Suspect]
     Indication: HEART RATE
     Route: 048
     Dates: start: 2012
  3. VITAMIN D [Concomitant]
     Route: 065
     Dates: start: 2012
  4. VITAMIN B12 [Concomitant]
     Route: 065
     Dates: start: 2012

REACTIONS (6)
  - Colon cancer [Not Recovered/Not Resolved]
  - Chemotherapy [Recovered/Resolved]
  - Rash macular [Not Recovered/Not Resolved]
  - Increased tendency to bruise [Not Recovered/Not Resolved]
  - Haemorrhagic diathesis [Not Recovered/Not Resolved]
  - Contusion [Not Recovered/Not Resolved]
